FAERS Safety Report 4314952-1 (Version None)
Quarter: 2004Q1

REPORT INFORMATION
  Report Type: 
  Country: None (occurrence: None)
  Receive Date: 20040309
  Receipt Date: 20040224
  Transmission Date: 20041129
  Serious: Yes (Other)
  Sender: FDA-Public Use
  Company Number: US-JNJFOC-20040205979

PATIENT
  Age: 73 Year
  Sex: Female

DRUGS (2)
  1. REMICADE [Suspect]
     Indication: RHEUMATOID ARTHRITIS
  2. METHOTREXATE [Concomitant]

REACTIONS (5)
  - ECONOMIC PROBLEM [None]
  - INTERVERTEBRAL DISC DEGENERATION [None]
  - MENISCUS LESION [None]
  - NERVE COMPRESSION [None]
  - SCIATIC NERVE INJURY [None]
